FAERS Safety Report 9792517 (Version 5)
Quarter: 2016Q4

REPORT INFORMATION
  Report Type: Spontaneous
  Country: US (occurrence: US)
  Receive Date: 20140102
  Receipt Date: 20161101
  Transmission Date: 20170207
  Serious: Yes (Hospitalization, Other)
  Sender: FDA-Public Use
  Company Number: US-009507513-1312USA011695

PATIENT
  Sex: Female
  Weight: 83.9 kg

DRUGS (4)
  1. FOSAMAX [Suspect]
     Active Substance: ALENDRONATE SODIUM
     Indication: OSTEOPENIA
     Dosage: 70 MG, QW
     Route: 048
     Dates: end: 201110
  2. ALENDRONATE SODIUM. [Suspect]
     Active Substance: ALENDRONATE SODIUM
     Indication: OSTEOPENIA
  3. FOSAMAX [Suspect]
     Active Substance: ALENDRONATE SODIUM
     Indication: OSTEOPOROSIS
     Dosage: 5 MG, UNK
     Route: 048
     Dates: start: 19990618
  4. ALENDRONATE SODIUM. [Suspect]
     Active Substance: ALENDRONATE SODIUM
     Indication: OSTEOPOROSIS
     Dosage: 70 MG, QW
     Route: 048
     Dates: end: 201210

REACTIONS (43)
  - Type 2 diabetes mellitus [Unknown]
  - Vitamin D deficiency [Unknown]
  - Calcium deficiency [Unknown]
  - Removal of internal fixation [Unknown]
  - Atrophic vulvovaginitis [Unknown]
  - Back disorder [Unknown]
  - Contusion [Unknown]
  - Device failure [Unknown]
  - Intramedullary rod insertion [Unknown]
  - Depression [Not Recovered/Not Resolved]
  - Hypotension [Unknown]
  - Osteoarthritis [Unknown]
  - Intramedullary rod insertion [Unknown]
  - Cardiac pacemaker insertion [Unknown]
  - Low turnover osteopathy [Unknown]
  - Haemorrhagic anaemia [Recovering/Resolving]
  - Bundle branch block left [Unknown]
  - Diverticulitis [Unknown]
  - Fall [Unknown]
  - Adverse event [Unknown]
  - Cardiac arrest [Recovered/Resolved]
  - Colectomy [Unknown]
  - Anxiety [Not Recovered/Not Resolved]
  - Fracture nonunion [Unknown]
  - Anaemia postoperative [Recovering/Resolving]
  - Device failure [Unknown]
  - Hypotension [Unknown]
  - Nail disorder [Unknown]
  - Foot fracture [Unknown]
  - Femur fracture [Unknown]
  - Device breakage [Unknown]
  - Cardiac pacemaker insertion [Unknown]
  - Fracture nonunion [Unknown]
  - Hip arthroplasty [Unknown]
  - Coronary artery disease [Unknown]
  - Stress [Not Recovered/Not Resolved]
  - Peroneal nerve palsy [Unknown]
  - Medical device removal [Unknown]
  - Joint dislocation reduction [Unknown]
  - Knee arthroplasty [Unknown]
  - Knee arthroplasty [Unknown]
  - Abdominal hernia [Unknown]
  - Device dislocation [Unknown]

NARRATIVE: CASE EVENT DATE: 19991123
